FAERS Safety Report 6248891-6 (Version None)
Quarter: 2009Q2

REPORT INFORMATION
  Report Type: 
  Country: None (occurrence: None)
  Receive Date: 20090629
  Receipt Date: 20090616
  Transmission Date: 20091009
  Serious: Yes (Other)
  Sender: FDA-Public Use
  Company Number: US-PFIZER INC-2009228199

PATIENT
  Sex: Female
  Weight: 43.764 kg

DRUGS (2)
  1. DILANTIN-125 [Suspect]
     Indication: EPILEPSY
     Dosage: UNK
  2. AMOXICILLIN AND AMOXICILLIN TRIHYDRATE [Suspect]
     Dosage: UNK
     Dates: start: 20090101

REACTIONS (5)
  - ANTICONVULSANT DRUG LEVEL ABOVE THERAPEUTIC [None]
  - ANTICONVULSANT DRUG LEVEL DECREASED [None]
  - CONVULSION [None]
  - PNEUMONIA [None]
  - TREMOR [None]
